FAERS Safety Report 8943423 (Version 1)
Quarter: 2012Q4

REPORT INFORMATION
  Report Type: 
  Country: DE (occurrence: DE)
  Receive Date: 20121204
  Receipt Date: 20121204
  Transmission Date: 20130627
  Serious: Yes (Death)
  Sender: FDA-Public Use
  Company Number: DE-CELGENEUS-062-21660-12100600

PATIENT
  Age: 42 Year
  Sex: Female
  Weight: 78 kg

DRUGS (2)
  1. ABRAXANE [Suspect]
     Indication: BREAST CANCER
     Route: 065
     Dates: start: 201207
  2. TRASTUZUMAB [Concomitant]
     Indication: BREAST CANCER
     Route: 065
     Dates: start: 201207

REACTIONS (2)
  - Neoplasm progression [Fatal]
  - Drug intolerance [Unknown]
